FAERS Safety Report 21093328 (Version 1)
Quarter: 2022Q3

REPORT INFORMATION
  Report Type: Report from Study
  Country: US (occurrence: US)
  Receive Date: 20220718
  Receipt Date: 20220718
  Transmission Date: 20221027
  Serious: Yes (Hospitalization)
  Sender: FDA-Public Use
  Company Number: US-ALNYLAM PHARMACEUTICALS, INC.-ALN-2022-002471

PATIENT

DRUGS (1)
  1. ONPATTRO [Suspect]
     Active Substance: PATISIRAN SODIUM
     Indication: Hereditary neuropathic amyloidosis
     Dosage: WEIGHT DOSING
     Route: 042
     Dates: start: 20200131

REACTIONS (4)
  - Constipation [Unknown]
  - Abdominal distension [Unknown]
  - Dysuria [Unknown]
  - Wound [Unknown]
